FAERS Safety Report 8143696-3 (Version None)
Quarter: 2012Q1

REPORT INFORMATION
  Report Type: 
  Country: None (occurrence: None)
  Receive Date: 20120103
  Receipt Date: 20111003
  Transmission Date: 20120608
  Serious: No
  Sender: FDA-Public Use
  Company Number: AE-2011-001401

PATIENT
  Sex: Female
  Weight: 77.1115 kg

DRUGS (6)
  1. PEGASYS [Concomitant]
  2. PHYTONADIONE [Concomitant]
  3. CALCIUM CARBONATE [Concomitant]
  4. INCIVEK [Suspect]
     Dosage: 2250 MG (750 MG, 3 IN 1 D), ORAL
     Route: 048
     Dates: start: 20110824
  5. PRBIOTICS (LACTOBACILLUS REUTERI) [Concomitant]
  6. RIBAVIRIN [Concomitant]

REACTIONS (1)
  - RASH [None]
